FAERS Safety Report 10173124 (Version 1)
Quarter: 2014Q2

REPORT INFORMATION
  Report Type: Spontaneous
  Country: US (occurrence: None)
  Receive Date: 20140514
  Receipt Date: 20140514
  Transmission Date: 20141212
  Serious: Yes (Hospitalization)
  Sender: FDA-Public Use
  Company Number: None

PATIENT
  Age: 18 Year
  Sex: Female
  Weight: 69.9 kg

DRUGS (2)
  1. NUVA RING [Suspect]
     Indication: MENORRHAGIA
     Dosage: 1 RING MONTHLY VAGINAL
  2. NUVA RING [Suspect]
     Dosage: 1 RING MONTHLY VAGINAL

REACTIONS (1)
  - Back pain [None]
